FAERS Safety Report 5398161-3 (Version None)
Quarter: 2007Q3

REPORT INFORMATION
  Report Type: 
  Country: None (occurrence: None)
  Receive Date: 20070726
  Receipt Date: 20070718
  Transmission Date: 20080115
  Serious: Yes (Hospitalization)
  Sender: FDA-Public Use
  Company Number: BG-SHR-BG-2007-022216

PATIENT
  Sex: Female

DRUGS (1)
  1. MIRENA [Suspect]
     Dosage: 20 A?G, CONT
     Route: 015
     Dates: end: 20070101

REACTIONS (2)
  - MENTAL DISORDER [None]
  - RETINAL VASCULAR THROMBOSIS [None]
